FAERS Safety Report 8627982 (Version 2)
Quarter: 2012Q4

REPORT INFORMATION
  Report Type: 
  Country: DE (occurrence: DE)
  Receive Date: 20120621
  Receipt Date: 20120914
  Transmission Date: 20130627
  Serious: Yes (Other)
  Sender: FDA-Public Use
  Company Number: DE-ASTRAZENECA-2012SE40949

PATIENT
  Age: 70 Year
  Sex: Female
  Weight: 70 kg

DRUGS (1)
  1. SYMBICORT TURBOHALER [Suspect]
     Indication: ASTHMA
     Dosage: 320/9 ug UNKNOWN FREQUENCY
     Route: 055

REACTIONS (2)
  - Haemoptysis [Unknown]
  - Throat irritation [Unknown]
